FAERS Safety Report 24406092 (Version 2)
Quarter: 2024Q4

REPORT INFORMATION
  Report Type: Report from Study
  Country: ES (occurrence: ES)
  Receive Date: 20241007
  Receipt Date: 20241029
  Transmission Date: 20250115
  Serious: Yes (Hospitalization, Other)
  Sender: SK LIFE SCIENCE
  Company Number: ES-ACRAF SpA-2024-035890

PATIENT

DRUGS (4)
  1. XCOPRI [Suspect]
     Active Substance: CENOBAMATE
     Indication: Epilepsy
     Dosage: 100MG AT LUNCH AND 300MG AT DINNER (400 MG,1 IN 1 D)
     Route: 048
     Dates: start: 202301
  2. CLOBAZAM [Concomitant]
     Active Substance: CLOBAZAM
     Indication: Product used for unknown indication
     Dosage: 0-0-5MG
     Route: 065
  3. KEPPRA [Concomitant]
     Active Substance: LEVETIRACETAM
     Indication: Product used for unknown indication
     Dosage: 500-500-500
     Route: 065
  4. VALPROIC ACID [Concomitant]
     Active Substance: VALPROIC ACID
     Indication: Product used for unknown indication
     Dosage: 500-0-500.
     Route: 065

REACTIONS (10)
  - Cerebellar syndrome [Recovered/Resolved]
  - Balance disorder [Recovered/Resolved]
  - Vision blurred [Recovered/Resolved]
  - Vomiting [Recovered/Resolved]
  - Somnolence [Recovered/Resolved]
  - Off label use [Not Recovered/Not Resolved]
  - Diplopia [Unknown]
  - Ataxia [Unknown]
  - Dysarthria [Unknown]
  - Aphasia [Not Recovered/Not Resolved]
